FAERS Safety Report 25666348 (Version 1)
Quarter: 2025Q3

REPORT INFORMATION
  Report Type: Spontaneous
  Country: US (occurrence: None)
  Receive Date: 20250811
  Receipt Date: 20250811
  Transmission Date: 20251020
  Serious: Yes (Other)
  Sender: FDA-CTU
  Company Number: None

PATIENT
  Age: 57 Year
  Sex: Male
  Weight: 81 kg

DRUGS (2)
  1. DUPIXENT [Suspect]
     Active Substance: DUPILUMAB
     Indication: Urticaria
     Dates: start: 20250808, end: 20250808
  2. ZYRTEC [Concomitant]
     Active Substance: CETIRIZINE HYDROCHLORIDE

REACTIONS (9)
  - Injection site pain [None]
  - Arthralgia [None]
  - Oesophageal spasm [None]
  - Neck pain [None]
  - Arthralgia [None]
  - Pyrexia [None]
  - Peripheral swelling [None]
  - Peripheral swelling [None]
  - Musculoskeletal disorder [None]

NARRATIVE: CASE EVENT DATE: 20250808
